FAERS Safety Report 24059147 (Version 2)
Quarter: 2024Q3

REPORT INFORMATION
  Report Type: Spontaneous
  Country: US (occurrence: US)
  Receive Date: 20240708
  Receipt Date: 20240731
  Transmission Date: 20241017
  Serious: Yes (Hospitalization, Other)
  Sender: STEMLINE THERAPEUTICS
  Company Number: US-Stemline Therapeutics, Inc.-2024ST004013

PATIENT
  Age: 86 Year
  Sex: Female

DRUGS (1)
  1. ORSERDU [Suspect]
     Active Substance: ELACESTRANT
     Indication: Product used for unknown indication
     Route: 048
     Dates: start: 20240603

REACTIONS (13)
  - Pneumonia [Unknown]
  - Choking [Unknown]
  - Taste disorder [Unknown]
  - Hypersensitivity [Unknown]
  - Pyrexia [Unknown]
  - Sinusitis [Unknown]
  - Infection [Unknown]
  - Dizziness [Unknown]
  - Nausea [Unknown]
  - Abdominal discomfort [Unknown]
  - Blood creatinine increased [Unknown]
  - Musculoskeletal chest pain [Unknown]
  - Dyspnoea [Unknown]
